FAERS Safety Report 6052863-4 (Version None)
Quarter: 2009Q1

REPORT INFORMATION
  Report Type: 
  Country: None (occurrence: None)
  Receive Date: 20090127
  Receipt Date: 20090115
  Transmission Date: 20090719
  Serious: Yes (Life-Threatening, Other)
  Sender: FDA-Public Use
  Company Number: CA-ASTRAZENECA-2007UW23863

PATIENT
  Age: 50 Year
  Sex: Male
  Weight: 73 kg

DRUGS (2)
  1. SEROQUEL [Suspect]
     Route: 048
  2. LITHIUM [Suspect]
     Dosage: 9 DOSAGE FORMS

REACTIONS (2)
  - BLINDNESS [None]
  - HYPOKINESIA [None]
